FAERS Safety Report 8782662 (Version 1)
Quarter: 2012Q4

REPORT INFORMATION
  Report Type: 
  Country: OM (occurrence: OM)
  Receive Date: 20120913
  Receipt Date: 20120913
  Transmission Date: 20130627
  Serious: Yes (Other)
  Sender: FDA-Public Use
  Company Number: OM-PFIZER INC-2012221197

PATIENT
  Age: 3 Year
  Sex: Male

DRUGS (2)
  1. FOSPHENYTOIN SODIUM [Suspect]
     Indication: STATUS EPILEPTICUS
     Dosage: 17.4 mg PE/kg
     Route: 040
  2. FOSPHENYTOIN SODIUM [Suspect]
     Dosage: 10 mg PE/kg/day in two divided doses

REACTIONS (3)
  - Anticonvulsant drug level below therapeutic [Unknown]
  - Partial seizures [None]
  - Disease recurrence [None]
